FAERS Safety Report 13994408 (Version 1)
Quarter: 2017Q3

REPORT INFORMATION
  Report Type: Spontaneous
  Country: DE (occurrence: DE)
  Receive Date: 20170920
  Receipt Date: 20170920
  Transmission Date: 20171128
  Serious: Yes (Other)
  Sender: FDA-Public Use
  Company Number: DE-BAXTER-2017BAX032972

PATIENT
  Age: 6 Year
  Sex: Male
  Weight: 16 kg

DRUGS (3)
  1. METRONIDAZOL-INFUSIONSL?SUNG 0,5 % BAXTER [Suspect]
     Active Substance: METRONIDAZOLE
     Indication: CLOSTRIDIUM DIFFICILE INFECTION
     Route: 042
     Dates: start: 20170112, end: 20170115
  2. THIOTEPA. [Suspect]
     Active Substance: THIOTEPA
     Indication: MEDULLOBLASTOMA RECURRENT
     Dosage: HIGH DOSE CHEMOTHERAPY TREATMENT
     Route: 042
     Dates: start: 20170109, end: 20170112
  3. ENDOXAN 1G [Suspect]
     Active Substance: CYCLOPHOSPHAMIDE
     Indication: MEDULLOBLASTOMA RECURRENT
     Dosage: HIGH DOSE CHEMOTHERAPY TREATMENT
     Route: 042
     Dates: start: 20170109, end: 20170112

REACTIONS (3)
  - Clostridium difficile infection [Unknown]
  - Pruritus [Recovered/Resolved]
  - Drug eruption [Recovered/Resolved]

NARRATIVE: CASE EVENT DATE: 201701
